FAERS Safety Report 23488308 (Version 3)
Quarter: 2024Q3

REPORT INFORMATION
  Report Type: Spontaneous
  Country: US (occurrence: US)
  Receive Date: 20240206
  Receipt Date: 20240909
  Transmission Date: 20241016
  Serious: Yes (Other)
  Sender: SANOFI AVENTIS
  Company Number: US-SA-SAC20240130001059

PATIENT
  Age: 22 Year
  Sex: Female

DRUGS (3)
  1. DUPIXENT [Suspect]
     Active Substance: DUPILUMAB
     Indication: Eczema
     Dosage: 600 MG, 1X
     Route: 058
     Dates: start: 20231121, end: 20231121
  2. DUPIXENT [Suspect]
     Active Substance: DUPILUMAB
     Indication: Dermatitis atopic
     Dosage: 300 MG, QOW
     Route: 058
     Dates: start: 202312
  3. CLINDAMYCIN [Suspect]
     Active Substance: CLINDAMYCIN

REACTIONS (14)
  - Anaphylactic reaction [Unknown]
  - Allergy to animal [Recovered/Resolved]
  - Swelling face [Recovered/Resolved]
  - Eye swelling [Recovered/Resolved]
  - Skin exfoliation [Unknown]
  - Lip swelling [Unknown]
  - Oral discomfort [Unknown]
  - Blister [Unknown]
  - Swollen tongue [Unknown]
  - Tongue discomfort [Unknown]
  - Pharyngeal swelling [Unknown]
  - Oropharyngeal discomfort [Unknown]
  - Erythema [Unknown]
  - Drug hypersensitivity [Unknown]

NARRATIVE: CASE EVENT DATE: 20231101
